FAERS Safety Report 12926453 (Version 1)
Quarter: 2016Q4

REPORT INFORMATION
  Report Type: Spontaneous
  Country: US (occurrence: US)
  Receive Date: 20161109
  Receipt Date: 20161109
  Transmission Date: 20170207
  Serious: Yes (Hospitalization, Other)
  Sender: FDA-Public Use
  Company Number: US-BION-20160667

PATIENT
  Age: 60 Year
  Sex: Female
  Weight: 61.24 kg

DRUGS (17)
  1. STOOL SOFTENER (DOCUSATE CALCIUM) [Concomitant]
     Active Substance: DOCUSATE CALCIUM
  2. TRAMADOL. [Concomitant]
     Active Substance: TRAMADOL
  3. VITAMIN D3 [Concomitant]
     Active Substance: CHOLECALCIFEROL
  4. SPIRONOLACTONE. [Concomitant]
     Active Substance: SPIRONOLACTONE
  5. CITRACAL [Concomitant]
     Active Substance: CALCIUM CITRATE
     Dosage: 3 DF QD
  6. LEVOTHYROXINE SODIUM. [Concomitant]
     Active Substance: LEVOTHYROXINE SODIUM
  7. HYDROCODONE [Concomitant]
     Active Substance: HYDROCODONE
  8. TOVIAZ [Concomitant]
     Active Substance: FESOTERODINE FUMARATE
  9. COQ10 [Concomitant]
     Active Substance: UBIDECARENONE
  10. GABAPENTIN. [Concomitant]
     Active Substance: GABAPENTIN
  11. SIMVASTATIN. [Concomitant]
     Active Substance: SIMVASTATIN
  12. MIRALAX [Concomitant]
     Active Substance: POLYETHYLENE GLYCOL 3350
  13. AMANTADINE [Suspect]
     Active Substance: AMANTADINE
     Dates: end: 201605
  14. AMPYRA [Suspect]
     Active Substance: DALFAMPRIDINE
     Indication: OFF LABEL USE
     Dosage: 10 MG, BID, ORAL 8 HOURS APART
     Route: 048
     Dates: start: 2010, end: 20160406
  15. TIZANIDINE. [Suspect]
     Active Substance: TIZANIDINE
  16. DHEA [Concomitant]
     Active Substance: PRASTERONE
  17. MIRTAZAPINE. [Concomitant]
     Active Substance: MIRTAZAPINE

REACTIONS (4)
  - Cerebrovascular accident [Recovered/Resolved]
  - Cystitis [Unknown]
  - Weight fluctuation [Unknown]
  - Hallucination [Recovered/Resolved]

NARRATIVE: CASE EVENT DATE: 20160301
